FAERS Safety Report 22523289 (Version 1)
Quarter: 2023Q2

REPORT INFORMATION
  Report Type: Other
  Country: US (occurrence: None)
  Receive Date: 20230606
  Receipt Date: 20230606
  Transmission Date: 20230721
  Serious: Yes (Hospitalization)
  Sender: FDA-Public Use
  Company Number: US-ROCHE-3359829

PATIENT
  Age: 43 Year
  Sex: Female
  Weight: 65.376 kg

DRUGS (9)
  1. OCREVUS [Suspect]
     Active Substance: OCRELIZUMAB
     Indication: Primary progressive multiple sclerosis
     Dosage: DATE OF TREATMENT: 2023-02-15
     Route: 042
     Dates: start: 202007
  2. DALFAMPRIDINE [Concomitant]
     Active Substance: DALFAMPRIDINE
  3. BACLOFEN [Concomitant]
     Active Substance: BACLOFEN
  4. METOPROLOL [Concomitant]
     Active Substance: METOPROLOL
  5. AMITRIPTYLINE [Concomitant]
     Active Substance: AMITRIPTYLINE
  6. AMLODIPINE [Concomitant]
     Active Substance: AMLODIPINE BESYLATE
  7. LOSARTAN [Concomitant]
     Active Substance: LOSARTAN
  8. LANTUS [Concomitant]
     Active Substance: INSULIN GLARGINE
  9. HUMALOG [Concomitant]
     Active Substance: INSULIN LISPRO

REACTIONS (9)
  - Urinary tract infection [Recovered/Resolved]
  - Diabetic ketoacidosis [Recovered/Resolved]
  - Dehydration [Recovered/Resolved]
  - Neck pain [Unknown]
  - Sleep disorder [Unknown]
  - Back pain [Unknown]
  - Headache [Unknown]
  - Depression [Unknown]
  - Immobile [Unknown]

NARRATIVE: CASE EVENT DATE: 20230401
